FAERS Safety Report 20673013 (Version 1)
Quarter: 2022Q2

REPORT INFORMATION
  Report Type: Report from Study
  Country: BR (occurrence: BR)
  Receive Date: 20220405
  Receipt Date: 20220405
  Transmission Date: 20220721
  Serious: Yes (Other)
  Sender: FDA-Public Use
  Company Number: BR-NOVARTISPH-NVSC2021BR302583

PATIENT
  Sex: Female
  Weight: 58 kg

DRUGS (22)
  1. ANASTROZOLE [Suspect]
     Active Substance: ANASTROZOLE
     Indication: Antioestrogen therapy
     Dosage: UNK
     Route: 065
     Dates: start: 2015, end: 2018
  2. LETROZOLE [Suspect]
     Active Substance: LETROZOLE
     Indication: Product used for unknown indication
     Dosage: UNK
     Route: 065
     Dates: start: 2016, end: 2018
  3. TAMOXIFEN [Suspect]
     Active Substance: TAMOXIFEN
     Indication: Antioestrogen therapy
     Dosage: UNK
     Route: 065
     Dates: start: 2015, end: 2018
  4. KISQALI [Suspect]
     Active Substance: RIBOCICLIB
     Indication: Breast cancer
     Dosage: 200 MG
     Route: 065
  5. KISQALI [Suspect]
     Active Substance: RIBOCICLIB
     Dosage: UNK
     Route: 065
     Dates: start: 20210104
  6. KISQALI [Suspect]
     Active Substance: RIBOCICLIB
     Dosage: UNK
     Route: 065
     Dates: start: 20210104
  7. KISQALI [Suspect]
     Active Substance: RIBOCICLIB
     Dosage: UNK
     Route: 065
     Dates: start: 20210104
  8. KISQALI [Suspect]
     Active Substance: RIBOCICLIB
     Dosage: UNK
     Route: 065
     Dates: start: 20210104
  9. KISQALI [Suspect]
     Active Substance: RIBOCICLIB
     Dosage: UNK (21 DAYS AND BREAK OF DAY 7)
     Route: 065
     Dates: start: 20210104
  10. KISQALI [Suspect]
     Active Substance: RIBOCICLIB
     Dosage: 600 MG, QD
     Route: 065
  11. ZOMETA [Suspect]
     Active Substance: ZOLEDRONIC ACID
     Indication: Product used for unknown indication
     Dosage: UNK (EVERY 3 MONTHS)
     Route: 065
     Dates: start: 201911
  12. ZOMETA [Suspect]
     Active Substance: ZOLEDRONIC ACID
     Dosage: UNK
     Route: 065
     Dates: start: 2019
  13. ZOMETA [Suspect]
     Active Substance: ZOLEDRONIC ACID
     Dosage: UNK UNK, Q3MO
     Route: 065
     Dates: start: 201901
  14. FULVESTRANT [Suspect]
     Active Substance: FULVESTRANT
     Indication: Product used for unknown indication
     Dosage: UNK (EVERY 28 DAYS)
     Route: 065
     Dates: start: 201911
  15. FULVESTRANT [Suspect]
     Active Substance: FULVESTRANT
     Dosage: 2 DOSAGE FORM
     Route: 065
     Dates: start: 2019
  16. FULVESTRANT [Suspect]
     Active Substance: FULVESTRANT
     Dosage: UNK
     Route: 065
     Dates: start: 201901
  17. FULVESTRANT [Suspect]
     Active Substance: FULVESTRANT
     Dosage: UNK
     Route: 065
     Dates: start: 2020
  18. SYSTANE (HYPROMELLOSE 2910 (4000 MPA.S)) [Concomitant]
     Active Substance: HYPROMELLOSE 2910 (4000 MPA.S)
     Indication: Eye lubrication therapy
     Dosage: UNK, TID
     Route: 065
  19. EXEMESTANE [Concomitant]
     Active Substance: EXEMESTANE
     Indication: Product used for unknown indication
     Dosage: UNK
     Route: 065
  20. EXEMESTANE [Concomitant]
     Active Substance: EXEMESTANE
     Dosage: UNK (STOPPED AFTER 3 MONTHS)
     Route: 065
     Dates: start: 2019
  21. CLONAZEPAM [Concomitant]
     Active Substance: CLONAZEPAM
     Indication: Product used for unknown indication
     Dosage: UNK
     Route: 065
  22. FASLODEX [Concomitant]
     Active Substance: FULVESTRANT
     Indication: Product used for unknown indication
     Dosage: UNK
     Route: 065
     Dates: start: 2020

REACTIONS (78)
  - Epistaxis [Recovering/Resolving]
  - Neoplasm malignant [Not Recovered/Not Resolved]
  - Metastases to bone [Unknown]
  - Breast cancer [Unknown]
  - Loss of consciousness [Unknown]
  - Haemangioma [Not Recovered/Not Resolved]
  - Spinal cord neoplasm [Recovered/Resolved]
  - Skull fracture [Not Recovered/Not Resolved]
  - Spinal cord injury [Not Recovered/Not Resolved]
  - Metastasis [Unknown]
  - Metastases to central nervous system [Unknown]
  - Immunodeficiency [Unknown]
  - Brain neoplasm [Recovered/Resolved]
  - Metastases to liver [Unknown]
  - Nasal dryness [Not Recovered/Not Resolved]
  - Skin exfoliation [Recovering/Resolving]
  - Skin fissures [Recovering/Resolving]
  - Dry skin [Not Recovered/Not Resolved]
  - Skin atrophy [Unknown]
  - Tumour marker abnormal [Unknown]
  - Tumour marker increased [Unknown]
  - Pain [Recovered/Resolved]
  - Discomfort [Recovered/Resolved]
  - Hiatus hernia [Unknown]
  - Reflux gastritis [Unknown]
  - Discouragement [Unknown]
  - Visual impairment [Unknown]
  - Movement disorder [Recovered/Resolved]
  - Greater trochanteric pain syndrome [Unknown]
  - Feeding disorder [Unknown]
  - Hernia [Unknown]
  - Burning sensation [Recovering/Resolving]
  - Pain of skin [Unknown]
  - Abdominal discomfort [Unknown]
  - Malaise [Unknown]
  - Hepatic lesion [Unknown]
  - White blood cell count decreased [Unknown]
  - Neutrophil count decreased [Unknown]
  - Rhinitis allergic [Not Recovered/Not Resolved]
  - Sinusitis [Unknown]
  - Bowel movement irregularity [Unknown]
  - PIK3CA-activated mutation [Unknown]
  - Vein disorder [Recovered/Resolved]
  - Ill-defined disorder [Unknown]
  - Pruritus [Not Recovered/Not Resolved]
  - Lip dry [Unknown]
  - Erythema [Unknown]
  - Hair texture abnormal [Unknown]
  - Swelling [Unknown]
  - Atrophic vulvovaginitis [Not Recovered/Not Resolved]
  - Vulvovaginal burning sensation [Recovered/Resolved]
  - Vulvovaginal discomfort [Not Recovered/Not Resolved]
  - Vulvovaginal dryness [Not Recovered/Not Resolved]
  - Urinary tract infection [Recovered/Resolved]
  - Inadequate lubrication [Not Recovered/Not Resolved]
  - Device physical property issue [Unknown]
  - Clavicle fracture [Not Recovered/Not Resolved]
  - Panic disorder [Recovering/Resolving]
  - Oestrogen deficiency [Not Recovered/Not Resolved]
  - Injury [Not Recovered/Not Resolved]
  - Pain [Recovering/Resolving]
  - Alopecia [Not Recovered/Not Resolved]
  - Skin laceration [Unknown]
  - Haematoma [Recovering/Resolving]
  - Macule [Recovering/Resolving]
  - Central nervous system lesion [Recovering/Resolving]
  - Vaginal disorder [Unknown]
  - Haemorrhoids [Unknown]
  - Spinal disorder [Recovering/Resolving]
  - Angiopathy [Unknown]
  - Neoplasm [Recovered/Resolved]
  - Haemangioma of bone [Unknown]
  - Carpal tunnel syndrome [Unknown]
  - Head discomfort [Unknown]
  - Weight decreased [Unknown]
  - Insomnia [Unknown]
  - Drug intolerance [Recovered/Resolved]
  - Drug ineffective [Not Recovered/Not Resolved]

NARRATIVE: CASE EVENT DATE: 20150101
